FAERS Safety Report 16246935 (Version 3)
Quarter: 2019Q2

REPORT INFORMATION
  Report Type: Spontaneous
  Country: DE (occurrence: DE)
  Receive Date: 20190427
  Receipt Date: 20190612
  Transmission Date: 20190711
  Serious: Yes (Other)
  Sender: FDA-Public Use
  Company Number: DE-JNJFOC-20190433124

PATIENT
  Sex: Female

DRUGS (14)
  1. CIPRALEX [Interacting]
     Active Substance: ESCITALOPRAM OXALATE
     Indication: DEPRESSION
     Route: 065
  2. CIPRALEX [Interacting]
     Active Substance: ESCITALOPRAM OXALATE
     Indication: BURNOUT SYNDROME
     Route: 065
  3. ESCITALOPRAM [Suspect]
     Active Substance: ESCITALOPRAM OXALATE
     Indication: BURNOUT SYNDROME
     Route: 065
  4. CIPRALEX [Interacting]
     Active Substance: ESCITALOPRAM OXALATE
     Indication: BURNOUT SYNDROME
     Route: 065
     Dates: start: 2007
  5. CIPRALEX [Interacting]
     Active Substance: ESCITALOPRAM OXALATE
     Indication: DEPRESSION
     Route: 065
  6. IBUPROFEN. [Suspect]
     Active Substance: IBUPROFEN
     Route: 065
  7. IBUPROFEN. [Interacting]
     Active Substance: IBUPROFEN
     Indication: PRODUCT USED FOR UNKNOWN INDICATION
     Route: 065
  8. ESCITALOPRAM [Suspect]
     Active Substance: ESCITALOPRAM OXALATE
     Indication: DEPRESSION
     Route: 065
  9. CIPRALEX [Interacting]
     Active Substance: ESCITALOPRAM OXALATE
     Indication: DEPRESSION
     Route: 065
  10. CIPRALEX [Interacting]
     Active Substance: ESCITALOPRAM OXALATE
     Indication: BURNOUT SYNDROME
     Route: 065
  11. ESCITALOPRAM [Suspect]
     Active Substance: ESCITALOPRAM OXALATE
     Indication: DEPRESSION
     Route: 065
  12. CIPRALEX [Interacting]
     Active Substance: ESCITALOPRAM OXALATE
     Indication: BURNOUT SYNDROME
     Route: 065
  13. ESCITALOPRAM [Suspect]
     Active Substance: ESCITALOPRAM OXALATE
     Indication: BURNOUT SYNDROME
     Route: 065
  14. CIPRALEX [Interacting]
     Active Substance: ESCITALOPRAM OXALATE
     Indication: DEPRESSION
     Route: 065
     Dates: start: 2007

REACTIONS (13)
  - Hypertension [Unknown]
  - Drug intolerance [Unknown]
  - Heart rate increased [Unknown]
  - Panic attack [Unknown]
  - Apparent death [Unknown]
  - Drug interaction [Unknown]
  - Depression [Unknown]
  - Underdose [Unknown]
  - Burnout syndrome [Unknown]
  - Restlessness [Unknown]
  - Hyperhidrosis [Unknown]
  - Palpitations [Unknown]
  - Stress [Unknown]

NARRATIVE: CASE EVENT DATE: 2017
